FAERS Safety Report 18119487 (Version 1)
Quarter: 2020Q3

REPORT INFORMATION
  Report Type: Spontaneous
  Country: BR (occurrence: BR)
  Receive Date: 20200806
  Receipt Date: 20200806
  Transmission Date: 20201103
  Serious: Yes (Other)
  Sender: FDA-Public Use
  Company Number: BR-HORIZON-VIM-0131-2020

PATIENT
  Age: 75 Year
  Sex: Female

DRUGS (3)
  1. AMLODIPINE BESYLATE. [Concomitant]
     Active Substance: AMLODIPINE BESYLATE
     Indication: HYPERTENSION
     Route: 048
  2. OMERPRAZOL [OMERPRAZOLE] [Concomitant]
     Indication: PRODUCT USED FOR UNKNOWN INDICATION
     Dosage: UNK
     Route: 048
  3. VIMOVO [Suspect]
     Active Substance: ESOMEPRAZOLE MAGNESIUM\NAPROXEN
     Indication: OEDEMA PERIPHERAL
     Dosage: 1 DOSAGE FORM, TWO TIMES DAILY
     Route: 048
     Dates: start: 20200724

REACTIONS (4)
  - Urinary retention [Unknown]
  - Condition aggravated [Unknown]
  - Generalised oedema [Unknown]
  - Malaise [Unknown]

NARRATIVE: CASE EVENT DATE: 202007
